FAERS Safety Report 10205206 (Version 2)
Quarter: 2014Q3

REPORT INFORMATION
  Report Type: Spontaneous
  Country: FR (occurrence: FR)
  Receive Date: 20140529
  Receipt Date: 20140930
  Transmission Date: 20150326
  Serious: Yes (Life-Threatening, Hospitalization, Disabling)
  Sender: FDA-Public Use
  Company Number: FR-PFIZER INC-2014145546

PATIENT
  Age: 30 Year
  Sex: Female
  Weight: 62 kg

DRUGS (12)
  1. CYTOTEC [Suspect]
     Active Substance: MISOPROSTOL
     Indication: LABOUR INDUCTION
     Dosage: 2 INTAKES OF 50 UG
     Route: 067
     Dates: start: 20110215, end: 20110215
  2. SYNTOCINON [Suspect]
     Active Substance: OXYTOCIN
     Indication: LABOUR INDUCTION
     Dosage: 5 IU AT 1.5 ML/H
     Route: 041
     Dates: start: 20110216, end: 20110216
  3. SYNTOCINON [Suspect]
     Active Substance: OXYTOCIN
     Dosage: 5 IU AT 1.5 ML/H
     Route: 041
     Dates: start: 20110216, end: 20110216
  4. PARACETAMOL [Concomitant]
     Active Substance: ACETAMINOPHEN
     Indication: HEADACHE
     Dosage: UNK
     Dates: start: 201102
  5. PERFALGAN [Concomitant]
     Active Substance: ACETAMINOPHEN
     Indication: PAIN
     Dosage: 1 G, SINGLE
     Route: 042
     Dates: start: 20110216, end: 20110216
  6. CLAMOXYL [Concomitant]
     Active Substance: AMOXICILLIN\CLAVULANIC ACID
     Dosage: 2 G, SINGLE
     Route: 048
     Dates: start: 20110215, end: 20110215
  7. RINGER-LACTATE [Concomitant]
     Dosage: UNK DOSE (1 L)
     Route: 042
     Dates: start: 20110216
  8. LOXEN LP [Concomitant]
     Active Substance: NICARDIPINE
     Dosage: UNK
     Dates: start: 20110213
  9. LOXEN LP [Concomitant]
     Active Substance: NICARDIPINE
     Dosage: 100 MG, SINGLE (50 MG X 2)
     Dates: start: 20110215
  10. ATARAX [Concomitant]
     Active Substance: HYDROXYZINE\HYDROXYZINE HYDROCHLORIDE
     Dosage: UNK
     Dates: start: 201102
  11. CLAMOXYL [Concomitant]
     Active Substance: AMOXICILLIN\CLAVULANIC ACID
     Dosage: 1 G, SINGLE
     Dates: start: 20110216, end: 20110216
  12. TRANDATE [Concomitant]
     Active Substance: LABETALOL HYDROCHLORIDE
     Dosage: UNK DOSE (STRENGTH: 200 MG)
     Dates: start: 20110215, end: 20110215

REACTIONS (7)
  - Uterine hyperstimulation [Recovered/Resolved]
  - Off label use [Unknown]
  - Perineal injury [Recovered/Resolved]
  - Headache [Recovered/Resolved]
  - Carotid artery aneurysm [Recovered/Resolved with Sequelae]
  - Uterine hypertonus [Recovered/Resolved]
  - Vomiting [Recovered/Resolved]

NARRATIVE: CASE EVENT DATE: 201102
